FAERS Safety Report 4641478-8 (Version None)
Quarter: 2005Q2

REPORT INFORMATION
  Report Type: 
  Country: None (occurrence: None)
  Receive Date: 20050421
  Receipt Date: 20050411
  Transmission Date: 20051028
  Serious: Yes (Hospitalization, Other)
  Sender: FDA-Public Use
  Company Number: US-GLAXOSMITHKLINE-A0553599A

PATIENT
  Age: 48 Year
  Sex: Male
  Weight: 76.4 kg

DRUGS (8)
  1. PAXIL [Suspect]
     Indication: OBSESSIVE-COMPULSIVE DISORDER
     Dosage: 40MG PER DAY
     Route: 048
     Dates: start: 20050304
  2. PAXIL [Suspect]
     Dosage: 37.5MG PER DAY
     Route: 048
  3. XANAX [Concomitant]
  4. SEROQUEL [Concomitant]
  5. ZOLOFT [Concomitant]
  6. AMBIEN [Concomitant]
  7. ZYPREXA [Concomitant]
  8. PSYCHOTROPIC MEDICATIONS [Concomitant]

REACTIONS (4)
  - OBSESSIVE-COMPULSIVE DISORDER [None]
  - RENAL FAILURE [None]
  - WEIGHT DECREASED [None]
  - WEIGHT INCREASED [None]
